FAERS Safety Report 8188389-1 (Version None)
Quarter: 2012Q1

REPORT INFORMATION
  Report Type: 
  Country: None (occurrence: None)
  Receive Date: 20120306
  Receipt Date: 20120223
  Transmission Date: 20120608
  Serious: Yes (Other)
  Sender: FDA-Public Use
  Company Number: PHFR2012GB001331

PATIENT
  Age: 84 Year

DRUGS (2)
  1. RIVASTIGMINE [Suspect]
     Dosage: 4.5 MG/24 HRS
     Route: 062
  2. RIVASTIGMINE [Suspect]
     Dosage: 9.5 MG/24HRS
     Route: 062
     Dates: start: 20120112, end: 20120210

REACTIONS (2)
  - SKIN REACTION [None]
  - SKIN IRRITATION [None]
